FAERS Safety Report 14194497 (Version 1)
Quarter: 2017Q4

REPORT INFORMATION
  Report Type: Spontaneous
  Country: US (occurrence: US)
  Receive Date: 20171115
  Receipt Date: 20171115
  Transmission Date: 20180321
  Serious: No
  Sender: FDA-Public Use
  Company Number: None

PATIENT
  Age: 60 Year
  Sex: Male

DRUGS (2)
  1. METOPROLOL TARTRATE 100MG [Suspect]
     Active Substance: METOPROLOL TARTRATE
     Indication: CARDIAC OPERATION
     Dosage: ?          QUANTITY:60 TABLET(S);?
     Route: 048
     Dates: start: 20171113, end: 20171113
  2. METOPROLOL TARTRATE 100MG [Suspect]
     Active Substance: METOPROLOL TARTRATE
     Indication: THERAPY CHANGE
     Dosage: ?          QUANTITY:60 TABLET(S);?
     Route: 048
     Dates: start: 20171113, end: 20171113

REACTIONS (2)
  - Drug dispensing error [None]
  - Drug dose omission [None]

NARRATIVE: CASE EVENT DATE: 20171113
